FAERS Safety Report 12137440 (Version 1)
Quarter: 2016Q1

REPORT INFORMATION
  Report Type: Spontaneous
  Country: US (occurrence: None)
  Receive Date: 20160301
  Receipt Date: 20160301
  Transmission Date: 20160526
  Serious: Yes (Life-Threatening, Hospitalization)
  Sender: FDA-Public Use
  Company Number: None

PATIENT
  Age: 47 Year
  Sex: Female
  Weight: 83 kg

DRUGS (1)
  1. ADO-TRASTUZUMAB GENENTECH [Suspect]
     Active Substance: ADO-TRASTUZUMAB EMTANSINE
     Indication: BREAST CANCER METASTATIC
     Dosage: 290 MG (3.6 MG/KG) EVERY 3 WEEKS, INTRAVENOUS
     Route: 042
     Dates: start: 20160225, end: 20160225

REACTIONS (4)
  - Encephalopathy [None]
  - Acute kidney injury [None]
  - Somnolence [None]
  - Acute hepatic failure [None]

NARRATIVE: CASE EVENT DATE: 20160228
